FAERS Safety Report 12188831 (Version 2)
Quarter: 2016Q3

REPORT INFORMATION
  Report Type: Spontaneous
  Country: US (occurrence: US)
  Receive Date: 20160317
  Receipt Date: 20160727
  Transmission Date: 20161109
  Serious: Yes (Other)
  Sender: FDA-Public Use
  Company Number: US-TEVA-643733USA

PATIENT
  Age: 66 Year
  Sex: Female

DRUGS (14)
  1. NORCO [Concomitant]
     Active Substance: ACETAMINOPHEN\HYDROCODONE BITARTRATE
     Dosage: 5/325; ONE TO TWO DAILY
  2. BIOTIN [Concomitant]
     Active Substance: BIOTIN
  3. VFEND [Suspect]
     Active Substance: VORICONAZOLE
     Indication: FUNGAL INFECTION
  4. VFEND [Suspect]
     Active Substance: VORICONAZOLE
     Indication: TENOSYNOVITIS
     Dosage: 800 MILLIGRAM DAILY;
     Route: 065
     Dates: start: 201502, end: 20151231
  5. AMITRIPTYLINE [Concomitant]
     Active Substance: AMITRIPTYLINE
  6. MAGNESIUM [Concomitant]
     Active Substance: MAGNESIUM
  7. PREDNISONE. [Concomitant]
     Active Substance: PREDNISONE
  8. OMEPRAZOLE. [Concomitant]
     Active Substance: OMEPRAZOLE
  9. FOLIC ACID. [Concomitant]
     Active Substance: FOLIC ACID
  10. VORICONAZOLE. [Suspect]
     Active Substance: VORICONAZOLE
     Indication: FUNGAL INFECTION
     Dosage: 800 MILLIGRAM DAILY;
  11. ZANTAC [Concomitant]
     Active Substance: RANITIDINE HYDROCHLORIDE
  12. VORICONAZOLE. [Suspect]
     Active Substance: VORICONAZOLE
     Indication: TENOSYNOVITIS
     Dosage: 400 MILLIGRAM DAILY;
     Dates: start: 201503
  13. CHOLEST-OFF [Concomitant]
     Active Substance: DIETARY SUPPLEMENT
  14. CALCIUM [Concomitant]
     Active Substance: CALCIUM

REACTIONS (5)
  - Retinopathy [Recovered/Resolved]
  - Adverse event [Not Recovered/Not Resolved]
  - Disturbance in attention [Not Recovered/Not Resolved]
  - Vision blurred [Recovered/Resolved]
  - Speech disorder [Not Recovered/Not Resolved]

NARRATIVE: CASE EVENT DATE: 201503
